FAERS Safety Report 16910589 (Version 1)
Quarter: 2019Q4

REPORT INFORMATION
  Report Type: Spontaneous
  Country: US (occurrence: US)
  Receive Date: 20190814
  Receipt Date: 20190814
  Transmission Date: 20200122
  Serious: No
  Sender: FDA-Public Use
  Company Number: None

PATIENT

DRUGS (2)
  1. SODIUM POLYSTYRENE SULFONATE. [Suspect]
     Active Substance: SODIUM POLYSTYRENE SULFONATE
  2. SORBITOL SOLUTION [Suspect]
     Active Substance: SORBITOL

REACTIONS (2)
  - Intercepted product selection error [None]
  - Product packaging confusion [None]
